FAERS Safety Report 19273872 (Version 1)
Quarter: 2021Q2

REPORT INFORMATION
  Report Type: Spontaneous
  Country: US (occurrence: US)
  Receive Date: 20210519
  Receipt Date: 20210519
  Transmission Date: 20210717
  Serious: Yes (Hospitalization, Other)
  Sender: FDA-Public Use
  Company Number: US-SUN PHARMACEUTICAL INDUSTRIES LTD-2021R1-297004

PATIENT
  Age: 2 Year
  Sex: Female
  Weight: 14.2 kg

DRUGS (3)
  1. SOTALOL. [Suspect]
     Active Substance: SOTALOL
     Dosage: 160 UNK, TID
     Route: 065
  2. SOTALOL. [Suspect]
     Active Substance: SOTALOL
     Dosage: 154 UNK, TID
     Route: 065
  3. SOTALOL. [Suspect]
     Active Substance: SOTALOL
     Indication: SUPRAVENTRICULAR TACHYCARDIA
     Dosage: 150 MILLIGRAM/SQ. METER, TID
     Route: 065

REACTIONS (1)
  - Hypoglycaemia [Recovered/Resolved]
